FAERS Safety Report 7468959-6 (Version None)
Quarter: 2011Q2

REPORT INFORMATION
  Report Type: 
  Country: None (occurrence: None)
  Receive Date: 20110429
  Receipt Date: 20110415
  Transmission Date: 20111010
  Serious: Yes (Life-Threatening)
  Sender: FDA-Public Use
  Company Number: 2011084018

PATIENT
  Sex: Female

DRUGS (7)
  1. CIPROFLOXACIN [Concomitant]
  2. DOMPERIDONE (DOMPERIDONE) [Concomitant]
  3. PEMETREXED [Suspect]
     Dosage: 875 MG, INTRAVENOUS
     Route: 042
     Dates: start: 20110405, end: 20110405
  4. LANSOPRAZOLE [Concomitant]
  5. DALTEPARIN SODIUM [Suspect]
     Indication: LUNG NEOPLASM MALIGNANT
  6. FOLIC ACID [Concomitant]
  7. CISPLATIN [Suspect]
     Dosage: 130 MG, INTRAVENOUS
     Route: 042
     Dates: start: 20110405, end: 20110405

REACTIONS (1)
  - ANAEMIA [None]
